FAERS Safety Report 24250364 (Version 2)
Quarter: 2024Q3

REPORT INFORMATION
  Report Type: Spontaneous
  Country: US (occurrence: US)
  Receive Date: 20240826
  Receipt Date: 20240828
  Transmission Date: 20241016
  Serious: No
  Sender: ABBVIE
  Company Number: US-ABBVIE-5894114

PATIENT
  Sex: Male

DRUGS (1)
  1. LINZESS [Suspect]
     Active Substance: LINACLOTIDE
     Indication: Volvulus
     Dosage: STRENGTH  290MCG
     Route: 048

REACTIONS (8)
  - Blister [Recovering/Resolving]
  - Rash pruritic [Recovering/Resolving]
  - Product use complaint [Unknown]
  - Wrong technique in product usage process [Unknown]
  - Off label use [Unknown]
  - Off label use [Unknown]
  - Off label use [Unknown]
  - Diarrhoea [Unknown]
